FAERS Safety Report 8999240 (Version 1)
Quarter: 2013Q1

REPORT INFORMATION
  Report Type: Spontaneous
  Country: US (occurrence: US)
  Receive Date: 20130105
  Receipt Date: 20130105
  Transmission Date: 20140127
  Serious: No
  Sender: FDA-Public Use
  Company Number: US-ASTRAZENECA-2012SE93647

PATIENT
  Sex: Female

DRUGS (3)
  1. NEXIUM [Suspect]
     Route: 048
     Dates: end: 2011
  2. NEXIUM [Suspect]
     Route: 048
     Dates: start: 201212
  3. ANTIBIOTIC [Concomitant]
     Indication: CYST

REACTIONS (6)
  - Eye oedema [Unknown]
  - Eye disorder [Unknown]
  - Sinus disorder [Unknown]
  - Malaise [Unknown]
  - Abdominal discomfort [Unknown]
  - Intentional drug misuse [Unknown]
